FAERS Safety Report 8163637-2 (Version None)
Quarter: 2012Q1

REPORT INFORMATION
  Report Type: 
  Country: None (occurrence: None)
  Receive Date: 20120103
  Receipt Date: 20111017
  Transmission Date: 20120608
  Serious: No
  Sender: FDA-Public Use
  Company Number: AE-2011-002413

PATIENT
  Sex: Male

DRUGS (3)
  1. RIBAVIRIN [Concomitant]
  2. PEGASYS [Concomitant]
  3. INCIVEK (TELAPREVIR) [Suspect]
     Dosage: 93.75 MG (750 MG,1 IN 8 D),ORAL
     Route: 048
     Dates: start: 20111006

REACTIONS (1)
  - RASH GENERALISED [None]
